FAERS Safety Report 12162336 (Version 1)
Quarter: 2016Q1

REPORT INFORMATION
  Report Type: Spontaneous
  Country: US (occurrence: None)
  Receive Date: 20160308
  Receipt Date: 20160308
  Transmission Date: 20160526
  Serious: Yes (Hospitalization)
  Sender: FDA-Public Use
  Company Number: None

PATIENT
  Age: 84 Year
  Sex: Female
  Weight: 81.6 kg

DRUGS (14)
  1. LASIX [Concomitant]
     Active Substance: FUROSEMIDE
  2. XARELTO [Suspect]
     Active Substance: RIVAROXABAN
     Indication: DEEP VEIN THROMBOSIS
     Dosage: CHRONIC
     Route: 048
  3. ZINC OXIDE. [Concomitant]
     Active Substance: ZINC OXIDE
  4. XARELTO [Suspect]
     Active Substance: RIVAROXABAN
     Indication: PULMONARY EMBOLISM
     Dosage: CHRONIC
     Route: 048
  5. ASPIRIN 81MG [Suspect]
     Active Substance: ASPIRIN
     Indication: PULMONARY EMBOLISM
     Dosage: CHRONIC
     Route: 048
  6. DITROPAN [Concomitant]
     Active Substance: OXYBUTYNIN CHLORIDE
  7. HIBICLENS [Concomitant]
     Active Substance: CHLORHEXIDINE GLUCONATE
  8. CARB [Concomitant]
  9. MAG OX [Concomitant]
     Active Substance: MAGNESIUM OXIDE
  10. MVI [Concomitant]
     Active Substance: VITAMINS
  11. K-DUR [Concomitant]
     Active Substance: POTASSIUM CHLORIDE
  12. CALCIUM [Concomitant]
     Active Substance: CALCIUM
  13. ASPIRIN 81MG [Suspect]
     Active Substance: ASPIRIN
     Indication: DEEP VEIN THROMBOSIS
     Dosage: CHRONIC
     Route: 048
  14. ATENOLOL. [Concomitant]
     Active Substance: ATENOLOL

REACTIONS (5)
  - Fall [None]
  - Haematoma [None]
  - Femur fracture [None]
  - Skin injury [None]
  - Confusional state [None]

NARRATIVE: CASE EVENT DATE: 20151028
